FAERS Safety Report 25306097 (Version 1)
Quarter: 2025Q2

REPORT INFORMATION
  Report Type: Spontaneous
  Country: HU (occurrence: HU)
  Receive Date: 20250513
  Receipt Date: 20250513
  Transmission Date: 20250716
  Serious: Yes (Hospitalization)
  Sender: ROCHE
  Company Number: HU-ROCHE-10000277508

PATIENT
  Sex: Male

DRUGS (1)
  1. TAMIFLU [Suspect]
     Active Substance: OSELTAMIVIR PHOSPHATE
     Indication: Influenza
     Route: 065

REACTIONS (5)
  - Pyrexia [Unknown]
  - Urinary tract infection [Unknown]
  - Kidney infection [Unknown]
  - Chronic kidney disease [Unknown]
  - Bladder dysfunction [Unknown]
